FAERS Safety Report 10423682 (Version 1)
Quarter: 2014Q3

REPORT INFORMATION
  Report Type: Spontaneous
  Country: US (occurrence: US)
  Receive Date: 20140902
  Receipt Date: 20140902
  Transmission Date: 20150326
  Serious: Yes (Death, Hospitalization)
  Sender: FDA-Public Use
  Company Number: PHHY2014US106310

PATIENT
  Age: 53 Year
  Sex: Male
  Weight: 66.9 kg

DRUGS (16)
  1. LACTOBACILLUS ACIDOPHILUS [Concomitant]
     Active Substance: LACTOBACILLUS ACIDOPHILUS
     Dosage: 1 DF, PER DAY
     Route: 048
  2. ATORVASTATIN [Concomitant]
     Active Substance: ATORVASTATIN
     Dosage: 20 MG, PER DAY
  3. MULTIVIT//VITAMINS NOS [Concomitant]
     Active Substance: VITAMINS
     Dosage: 1 DF, PER DAY
  4. PANTOPRAZOLE [Concomitant]
     Active Substance: PANTOPRAZOLE SODIUM
     Indication: PROPHYLAXIS
  5. HYDRALAZINE [Concomitant]
     Active Substance: HYDRALAZINE HYDROCHLORIDE
     Dosage: 25 MG, TID
  6. AMMONIUM LACTATE. [Concomitant]
     Active Substance: AMMONIUM LACTATE
     Route: 061
  7. MYCOSTATIN [Concomitant]
     Active Substance: NYSTATIN
  8. CALCIUM ACETATE. [Concomitant]
     Active Substance: CALCIUM ACETATE
     Dosage: 667 MG, TID
  9. FERROUS SULFATE [Concomitant]
     Active Substance: FERROUS SULFATE\FERROUS SULFATE, DRIED
     Dosage: 32 MG, BID
  10. ACETAMINOPHEN W/OXYCODONE [Concomitant]
     Active Substance: ACETAMINOPHEN\OXYCODONE HYDROCHLORIDE
     Dosage: 2 DF, Q4H-AS NEEDED
  11. NOVOLOG [Concomitant]
     Active Substance: INSULIN ASPART
     Dosage: 10 TO 15 U, QID
     Route: 058
  12. ACETAMINOPHEN. [Concomitant]
     Active Substance: ACETAMINOPHEN
     Dosage: 650 MG, PRN
     Route: 048
  13. TRAMADOL [Concomitant]
     Active Substance: TRAMADOL
     Dosage: 50 MG, Q6H
  14. CEFAZOLIN [Suspect]
     Active Substance: CEFAZOLIN
     Dosage: 2 G, QD
     Route: 042
  15. OCTREOTIDE [Concomitant]
     Active Substance: OCTREOTIDE
     Indication: PROPHYLAXIS
  16. DILTIAZEM [Concomitant]
     Active Substance: DILTIAZEM
     Dosage: 300 MG, PER DAY

REACTIONS (10)
  - International normalised ratio increased [Unknown]
  - Necrotising oesophagitis [Unknown]
  - Upper gastrointestinal haemorrhage [Unknown]
  - Infection [Unknown]
  - Ascites [Unknown]
  - Haematochezia [Unknown]
  - Death [Fatal]
  - Wound haemorrhage [Unknown]
  - Nausea [Unknown]
  - Haematemesis [Unknown]
